FAERS Safety Report 9242513 (Version 1)
Quarter: 2013Q2

REPORT INFORMATION
  Report Type: Spontaneous
  Country: US (occurrence: US)
  Receive Date: 20130419
  Receipt Date: 20130419
  Transmission Date: 20140414
  Serious: No
  Sender: FDA-Public Use
  Company Number: US-B.I. PHARMACEUTICALS,INC./RIDGEFIELD-2013-BI-08373BP

PATIENT
  Age: 72 Year
  Sex: Female
  Weight: 73 kg

DRUGS (9)
  1. AGGRENOX [Suspect]
     Indication: TRANSIENT ISCHAEMIC ATTACK
     Route: 048
     Dates: start: 20130321
  2. FLUOXETINE [Concomitant]
     Indication: DEPRESSION
     Dosage: 20 MG
     Route: 048
  3. QVAR [Concomitant]
     Indication: ASTHMA
  4. DILTIAZEM ER [Concomitant]
     Indication: CARDIAC DISORDER
  5. BUSPIRONE [Concomitant]
     Indication: ANXIETY
     Dosage: 5 MG
     Route: 048
  6. SIMVASTATIN [Concomitant]
     Indication: BLOOD CHOLESTEROL INCREASED
     Dosage: 80 MG
     Route: 048
  7. SINGULAR [Concomitant]
     Indication: ASTHMA
     Dosage: 10 MG
     Route: 048
  8. EVISTA [Concomitant]
     Indication: HORMONE REPLACEMENT THERAPY
     Route: 048
  9. TRIAMCINOLONE ACETATE NOSE SPAR [Concomitant]
     Indication: SEASONAL ALLERGY
     Route: 045

REACTIONS (6)
  - Headache [Not Recovered/Not Resolved]
  - Hypoaesthesia [Recovered/Resolved]
  - Headache [Unknown]
  - Ear discomfort [Unknown]
  - Oedema mouth [Unknown]
  - Dyspnoea [Unknown]
